FAERS Safety Report 8512756 (Version 5)
Quarter: 2013Q2

REPORT INFORMATION
  Report Type: Spontaneous
  Country: US (occurrence: US)
  Receive Date: 20120413
  Receipt Date: 20130501
  Transmission Date: 20140414
  Serious: No
  Sender: FDA-Public Use
  Company Number: US-ASTRAZENECA-2011SE60799

PATIENT
  Age: 67 Year
  Sex: Female

DRUGS (2)
  1. NEXIUM [Suspect]
     Route: 048
  2. NEXIUM [Suspect]
     Route: 048

REACTIONS (15)
  - Gastrooesophageal reflux disease [Unknown]
  - Aphagia [Unknown]
  - Sleep disorder due to a general medical condition [Unknown]
  - Weight decreased [Unknown]
  - Migraine [Unknown]
  - Neck pain [Unknown]
  - Occipital neuralgia [Unknown]
  - Oesophageal spasm [Unknown]
  - Arthritis [Unknown]
  - Musculoskeletal stiffness [Unknown]
  - Oesophageal disorder [Unknown]
  - Headache [Unknown]
  - Malaise [Unknown]
  - Intentional drug misuse [Unknown]
  - Drug dose omission [Unknown]
